FAERS Safety Report 14839901 (Version 1)
Quarter: 2018Q2

REPORT INFORMATION
  Report Type: Spontaneous
  Country: US (occurrence: US)
  Receive Date: 20180503
  Receipt Date: 20180503
  Transmission Date: 20180711
  Serious: No
  Sender: FDA-Public Use
  Company Number: US-TEVA-2018-US-886325

PATIENT
  Age: 63 Year
  Sex: Female
  Weight: 82 kg

DRUGS (3)
  1. CLARITIN [Concomitant]
     Active Substance: LORATADINE
  2. QVAR [Suspect]
     Active Substance: BECLOMETHASONE DIPROPIONATE
     Indication: ASTHMA
     Route: 065
     Dates: start: 201701
  3. MULTIVITAMIN [Concomitant]
     Active Substance: VITAMINS

REACTIONS (2)
  - Intentional product misuse [Unknown]
  - Insomnia [Unknown]
